FAERS Safety Report 4441881-5 (Version None)
Quarter: 2004Q3

REPORT INFORMATION
  Report Type: 
  Country: None (occurrence: None)
  Receive Date: 20040901
  Receipt Date: 20040818
  Transmission Date: 20050211
  Serious: Yes (Death, Hospitalization)
  Sender: FDA-Public Use
  Company Number: FABR-10739

PATIENT
  Age: 55 Year
  Sex: Male

DRUGS (1)
  1. FABRAZYME [Suspect]
     Indication: FABRY'S DISEASE

REACTIONS (7)
  - BACK PAIN [None]
  - C-REACTIVE PROTEIN INCREASED [None]
  - CARDIOVASCULAR DISORDER [None]
  - PUPIL FIXED [None]
  - PYREXIA [None]
  - RESPIRATORY FAILURE [None]
  - SOMNOLENCE [None]
